FAERS Safety Report 15981213 (Version 1)
Quarter: 2019Q1

REPORT INFORMATION
  Report Type: Spontaneous
  Country: US (occurrence: US)
  Receive Date: 20190218
  Receipt Date: 20190218
  Transmission Date: 20190418
  Serious: Yes (Disabling)
  Sender: FDA-Public Use
  Company Number: None

PATIENT
  Age: 64 Year
  Sex: Female
  Weight: 67.5 kg

DRUGS (8)
  1. MGO2 [Concomitant]
  2. LEVOTHYROXINE. [Concomitant]
     Active Substance: LEVOTHYROXINE
  3. PRAVASTATIN. [Concomitant]
     Active Substance: PRAVASTATIN
  4. RABEPRAZOLE [Concomitant]
     Active Substance: RABEPRAZOLE
  5. COQ10 [Concomitant]
     Active Substance: UBIDECARENONE
  6. AIMOVIG [Suspect]
     Active Substance: ERENUMAB-AOOE
     Indication: MIGRAINE
     Dosage: 2 INJECTION; ONCE A MONTH;SUBCUTANOUS INJECTION INTO THIGH?
     Route: 058
     Dates: start: 20181128, end: 20190128
  7. VITAMIN D3 [Concomitant]
     Active Substance: CHOLECALCIFEROL
  8. MULTIVIT [Concomitant]
     Active Substance: VITAMINS

REACTIONS (5)
  - Deafness [None]
  - Vertigo [None]
  - Vomiting [None]
  - Balance disorder [None]
  - Tinnitus [None]

NARRATIVE: CASE EVENT DATE: 20190123
